FAERS Safety Report 13776073 (Version 1)
Quarter: 2017Q3

REPORT INFORMATION
  Report Type: Spontaneous
  Country: FR (occurrence: FR)
  Receive Date: 20170721
  Receipt Date: 20170721
  Transmission Date: 20171127
  Serious: Yes (Disabling)
  Sender: FDA-Public Use
  Company Number: FR-TEVA-787696ROM

PATIENT
  Age: 49 Year
  Sex: Male

DRUGS (4)
  1. METHYLPREDNISOLONE. [Concomitant]
     Active Substance: METHYLPREDNISOLONE
  2. ARACYTINE [Suspect]
     Active Substance: CYTARABINE
     Indication: ACUTE MYELOID LEUKAEMIA
     Dosage: 4 GRAM DAILY; FLAG PROTOCOL
     Route: 042
     Dates: start: 20170615, end: 20170619
  3. ONDANSETRON [Concomitant]
     Active Substance: ONDANSETRON
  4. FLUDARABINE TEVA 25 MG/ML [Suspect]
     Active Substance: FLUDARABINE PHOSPHATE
     Indication: ACUTE MYELOID LEUKAEMIA
     Dosage: 50 MILLIGRAM DAILY; FLAG PROTOCOL
     Route: 042
     Dates: start: 20170615, end: 20170619

REACTIONS (2)
  - Circulatory collapse [Recovered/Resolved]
  - Guillain-Barre syndrome [Not Recovered/Not Resolved]

NARRATIVE: CASE EVENT DATE: 20170627
